FAERS Safety Report 23857754 (Version 2)
Quarter: 2024Q4

REPORT INFORMATION
  Report Type: Spontaneous
  Country: CA (occurrence: CA)
  Receive Date: 20240515
  Receipt Date: 20241009
  Transmission Date: 20250115
  Serious: Yes (Hospitalization, Other)
  Sender: AUROBINDO
  Company Number: CA-AUROBINDO-AUR-APL-2024-022542

PATIENT
  Age: 67 Year
  Sex: Male

DRUGS (19)
  1. IRINOTECAN HYDROCHLORIDE [Suspect]
     Active Substance: IRINOTECAN HYDROCHLORIDE
     Indication: Pancreatic carcinoma metastatic
     Dosage: UNK (5 CYCLES OF SECOND LINE FOLFIRINOX REGIMEN)
     Route: 065
     Dates: start: 202004
  2. IRINOTECAN HYDROCHLORIDE [Suspect]
     Active Substance: IRINOTECAN HYDROCHLORIDE
     Indication: Pancreatic carcinoma metastatic
     Dosage: UNK
     Route: 042
  3. OXALIPLATIN [Suspect]
     Active Substance: OXALIPLATIN
     Indication: Pancreatic carcinoma metastatic
     Dosage: UNK (5 CYCLES OF SECOND LINE FOLFIRINOX REGIMEN)
     Route: 065
     Dates: start: 202004
  4. OXALIPLATIN [Suspect]
     Active Substance: OXALIPLATIN
     Indication: Pancreatic carcinoma metastatic
     Dosage: UNK
     Route: 042
  5. ABRAXANE [Suspect]
     Active Substance: PACLITAXEL
     Indication: Pancreatic carcinoma metastatic
     Dosage: UNK
     Route: 065
     Dates: start: 202001
  6. CAPECITABINE [Suspect]
     Active Substance: CAPECITABINE
     Indication: Pancreatic carcinoma metastatic
     Dosage: UNK
     Route: 065
     Dates: start: 202004
  7. CAPECITABINE [Suspect]
     Active Substance: CAPECITABINE
     Dosage: UNK (CYCLE 2 IN AUGUST 2020)
     Route: 065
  8. CAPECITABINE [Suspect]
     Active Substance: CAPECITABINE
     Dosage: UNK
     Route: 065
     Dates: start: 202110
  9. DOCETAXEL [Suspect]
     Active Substance: DOCETAXEL
     Indication: Pancreatic carcinoma metastatic
     Dosage: UNK
     Route: 065
     Dates: start: 202004
  10. DOCETAXEL [Suspect]
     Active Substance: DOCETAXEL
     Dosage: UNK (CYCLE 2 IN AUGUST 2020)
     Route: 065
  11. DOCETAXEL [Suspect]
     Active Substance: DOCETAXEL
     Dosage: UNK
     Route: 065
     Dates: start: 202110
  12. FLUOROURACIL [Suspect]
     Active Substance: FLUOROURACIL
     Indication: Pancreatic carcinoma metastatic
     Dosage: UNK (5 CYCLES OF SECOND LINE FOLFIRINOX REGIMEN)
     Route: 065
     Dates: start: 202004
  13. LEUCOVORIN [Suspect]
     Active Substance: LEUCOVORIN\LEUCOVORIN CALCIUM
     Indication: Pancreatic carcinoma metastatic
     Dosage: UNK (5 CYCLES OF SECOND LINE FOLFIRINOX REGIMEN)
     Route: 065
     Dates: start: 202004
  14. GEMCITABINE [Suspect]
     Active Substance: GEMCITABINE
     Indication: Pancreatic carcinoma metastatic
     Dosage: UNK
     Route: 065
     Dates: start: 202001
  15. GEMCITABINE [Suspect]
     Active Substance: GEMCITABINE
     Dosage: UNK (CYCLE 2 IN AUGUST 2020)
     Route: 065
  16. GEMCITABINE [Suspect]
     Active Substance: GEMCITABINE
     Dosage: UNK
     Route: 065
     Dates: start: 202110
  17. GEMCITABINE [Suspect]
     Active Substance: GEMCITABINE
     Dosage: UNK (STARTED ON FOURTH-LINE GEMCITABINE AND CISPLATIN)
     Route: 065
     Dates: start: 202212
  18. LEUCOVORIN [Suspect]
     Active Substance: LEUCOVORIN\LEUCOVORIN CALCIUM
     Indication: Pancreatic carcinoma metastatic
     Dosage: UNK
     Route: 065
  19. CISPLATIN [Concomitant]
     Active Substance: CISPLATIN
     Indication: Pancreatic carcinoma metastatic
     Dosage: UNK (STARTED ON FOURTH-LINE GEMCITABINE AND CISPLATIN)
     Route: 065
     Dates: start: 202212

REACTIONS (3)
  - Drug ineffective [Unknown]
  - Disease progression [Recovering/Resolving]
  - Treatment failure [Recovering/Resolving]
